FAERS Safety Report 23601103 (Version 1)
Quarter: 2024Q1

REPORT INFORMATION
  Report Type: Spontaneous
  Country: US (occurrence: US)
  Receive Date: 20240306
  Receipt Date: 20240306
  Transmission Date: 20240410
  Serious: Yes (Death)
  Sender: FDA-Public Use
  Company Number: US-PFIZER INC-202400057437

PATIENT
  Age: 73 Year
  Sex: Male

DRUGS (3)
  1. VYNDAMAX [Suspect]
     Active Substance: TAFAMIDIS
     Indication: Amyloidosis
     Dosage: ONE 61MG BY MOUTH A DAY
     Route: 048
     Dates: start: 202209, end: 20231021
  2. MIDODRINE [Concomitant]
     Active Substance: MIDODRINE
     Indication: Orthostatic hypertension
     Dosage: 10MG THREE TIMES A DAY ORALLY
     Route: 048
     Dates: start: 202202, end: 20231010
  3. XARELTO [Concomitant]
     Active Substance: RIVAROXABAN
     Indication: Blood disorder
     Dosage: 20MG ONCE A DAY ORALLY
     Dates: end: 20231010

REACTIONS (2)
  - Secondary amyloidosis [Fatal]
  - Cardiac failure [Fatal]

NARRATIVE: CASE EVENT DATE: 20231026
